FAERS Safety Report 5868477-2 (Version None)
Quarter: 2008Q3

REPORT INFORMATION
  Report Type: 
  Country: None (occurrence: None)
  Receive Date: 20080902
  Receipt Date: 20080902
  Transmission Date: 20090109
  Serious: Yes (Other)
  Sender: FDA-Public Use
  Company Number: None

PATIENT
  Age: 53 Year
  Sex: Female
  Weight: 85.7298 kg

DRUGS (1)
  1. TIZANIDINE HCL [Suspect]
     Indication: BACK PAIN
     Dosage: 1 TABLET  2 X DAILY- AS NEEDE  PO
     Route: 048
     Dates: start: 20080829, end: 20080829

REACTIONS (8)
  - ABASIA [None]
  - DIZZINESS [None]
  - DRY MOUTH [None]
  - DYSARTHRIA [None]
  - FATIGUE [None]
  - FEELING DRUNK [None]
  - SOMNOLENCE [None]
  - THINKING ABNORMAL [None]
